FAERS Safety Report 7520835-6 (Version None)
Quarter: 2011Q2

REPORT INFORMATION
  Report Type: 
  Country: None (occurrence: None)
  Receive Date: 20110603
  Receipt Date: 20100514
  Transmission Date: 20111010
  Serious: Yes (Hospitalization, Other)
  Sender: FDA-Public Use
  Company Number: US-BAYER-201019787NA

PATIENT
  Age: 22 Year
  Sex: Female
  Weight: 42.273 kg

DRUGS (8)
  1. YASMIN [Suspect]
     Indication: CONTRACEPTION
     Dosage: UNK
     Route: 048
     Dates: start: 20050501, end: 20091001
  2. DROSPIRENONE AND ETHINYL ESTRADIOL [Suspect]
     Indication: CONTRACEPTION
     Dosage: UNK
     Route: 048
     Dates: start: 20050501, end: 20091001
  3. ADVAIR DISKUS 100/50 [Concomitant]
     Indication: ASTHMA
  4. ALBUTEROL SULFATE AUTOHALER [Concomitant]
  5. IBUPROFEN [Concomitant]
     Indication: MIGRAINE
  6. SINGULAIR [Concomitant]
  7. YAZ [Suspect]
     Indication: CONTRACEPTION
     Dosage: UNK
     Route: 048
     Dates: start: 20050501, end: 20091001
  8. ADVIL LIQUI-GELS [Concomitant]

REACTIONS (18)
  - SCINTILLATING SCOTOMA [None]
  - GASTROOESOPHAGEAL REFLUX DISEASE [None]
  - VOMITING [None]
  - DIZZINESS [None]
  - VAGINAL HAEMORRHAGE [None]
  - VISION BLURRED [None]
  - GALLBLADDER PAIN [None]
  - BLOOD AMYLASE INCREASED [None]
  - HYPERACUSIS [None]
  - VISUAL IMPAIRMENT [None]
  - ABDOMINAL PAIN [None]
  - CHEST PAIN [None]
  - HEADACHE [None]
  - DIARRHOEA [None]
  - VISUAL FIELD DEFECT [None]
  - PHOTOPHOBIA [None]
  - CHOLECYSTITIS CHRONIC [None]
  - PAIN [None]
